FAERS Safety Report 23410465 (Version 2)
Quarter: 2024Q1

REPORT INFORMATION
  Report Type: Spontaneous
  Country: US (occurrence: US)
  Receive Date: 20240117
  Receipt Date: 20240122
  Transmission Date: 20240409
  Serious: Yes (Other)
  Sender: FDA-Public Use
  Company Number: US-PFIZER INC-PV202400005386

PATIENT
  Age: 64 Year
  Sex: Female

DRUGS (3)
  1. NIFEDIPINE [Suspect]
     Active Substance: NIFEDIPINE
     Indication: Hypertension
     Dosage: 1 DF, DAILY
     Route: 048
     Dates: start: 20231228
  2. LENVIMA [Concomitant]
     Active Substance: LENVATINIB
     Dosage: 24 MG, DAILY
     Route: 048
  3. LENVIMA [Concomitant]
     Active Substance: LENVATINIB
     Dosage: 20 MG, DAILY

REACTIONS (2)
  - Headache [Recovering/Resolving]
  - Heart rate increased [Not Recovered/Not Resolved]
